FAERS Safety Report 5009765-1 (Version None)
Quarter: 2006Q2

REPORT INFORMATION
  Report Type: 
  Country: None (occurrence: None)
  Receive Date: 20060522
  Receipt Date: 20060511
  Transmission Date: 20061013
  Serious: Yes (Hospitalization)
  Sender: FDA-Public Use
  Company Number: 2006063431

PATIENT
  Age: 75 Year
  Sex: Male

DRUGS (3)
  1. AMLODIPINE [Suspect]
     Indication: HYPERTENSION
     Dosage: 5 MG (5 MG, QD) ORAL
     Route: 048
     Dates: start: 20050714, end: 20060118
  2. DIOVAN [Suspect]
     Indication: HYPERTENSION
     Dosage: 80 MG (80 MG, QD), ORAL
     Route: 048
     Dates: start: 20050714, end: 20060118
  3. ASPIRIN [Suspect]
     Indication: CEREBRAL INFARCTION
     Dosage: 100 MG (100 MG, QD) ,ORAL
     Route: 048
     Dates: start: 20050714, end: 20060118

REACTIONS (12)
  - APLASTIC ANAEMIA [None]
  - BLOOD DISORDER [None]
  - BLOOD SODIUM DECREASED [None]
  - COLONIC POLYP [None]
  - DIFFICULTY IN WALKING [None]
  - GASTRIC CANCER [None]
  - HAEMORRHAGE [None]
  - HYPERTENSION [None]
  - HYPOKALAEMIA [None]
  - HYPONATRAEMIA [None]
  - PANCYTOPENIA [None]
  - WERNICKE'S ENCEPHALOPATHY [None]
